FAERS Safety Report 10902064 (Version 2)
Quarter: 2015Q2

REPORT INFORMATION
  Report Type: Spontaneous
  Country: IT (occurrence: IT)
  Receive Date: 20150310
  Receipt Date: 20150401
  Transmission Date: 20150821
  Serious: Yes (Death, Hospitalization)
  Sender: FDA-Public Use
  Company Number: PHHY2015IT023389

PATIENT
  Age: 70 Year
  Sex: Female

DRUGS (3)
  1. ALBUMIN [Suspect]
     Active Substance: ALBUMIN (HUMAN)
     Indication: PRODUCT USED FOR UNKNOWN INDICATION
     Dosage: 1 DF, QD
     Route: 042
     Dates: start: 20140615, end: 20150217
  2. RIBAVIRIN. [Suspect]
     Active Substance: RIBAVIRIN
     Indication: CHRONIC HEPATITIS C
     Dosage: 600 MG, QD
     Route: 048
     Dates: start: 20150130, end: 20150217
  3. SOVALDI [Suspect]
     Active Substance: SOFOSBUVIR
     Indication: CHRONIC HEPATITIS C
     Dosage: 400 MG, QD
     Route: 048
     Dates: start: 20150130, end: 20150217

REACTIONS (5)
  - Chills [Fatal]
  - Septic shock [Fatal]
  - Pyrexia [Fatal]
  - Urinary tract infection [Fatal]
  - Cholecystitis infective [Fatal]

NARRATIVE: CASE EVENT DATE: 20150217
